FAERS Safety Report 7058515-6 (Version None)
Quarter: 2010Q4

REPORT INFORMATION
  Report Type: 
  Country: None (occurrence: None)
  Receive Date: 20101022
  Receipt Date: 20101013
  Transmission Date: 20110411
  Serious: Yes (Death)
  Sender: FDA-Public Use
  Company Number: US-PURDUE-USA-2010-0047707

PATIENT
  Sex: Male

DRUGS (2)
  1. OXYCODONE HCL [Suspect]
     Indication: BACK PAIN
     Dosage: UNK
     Route: 048
  2. NORCO [Suspect]
     Indication: BACK PAIN
     Dosage: UNK
     Route: 048
     Dates: start: 20100801

REACTIONS (2)
  - DEATH [None]
  - PAIN [None]
